FAERS Safety Report 9788829 (Version 4)
Quarter: 2014Q1

REPORT INFORMATION
  Report Type: Report from Study
  Country: ES (occurrence: ES)
  Receive Date: 20131230
  Receipt Date: 20140123
  Transmission Date: 20141002
  Serious: Yes (Other)
  Sender: FDA-Public Use
  Company Number: ES-TEVA-453683USA

PATIENT
  Age: 64 Year
  Sex: Female
  Weight: 60 kg

DRUGS (6)
  1. BENDAMUSTINE [Suspect]
     Indication: PLASMA CELL MYELOMA
     Route: 042
     Dates: start: 20120131, end: 20120619
  2. BENDAMUSTINE [Suspect]
     Route: 042
     Dates: start: 20120619
  3. VELCADE [Concomitant]
     Indication: PLASMA CELL MYELOMA
     Route: 042
     Dates: start: 20120131
  4. VELCADE [Concomitant]
     Route: 042
     Dates: start: 20120615
  5. PREDNISONE [Concomitant]
     Indication: PLASMA CELL MYELOMA
     Route: 042
     Dates: start: 20120131
  6. PREDNISONE [Concomitant]
     Route: 042
     Dates: start: 20120615

REACTIONS (1)
  - Blood stem cell harvest failure [Recovered/Resolved]
